FAERS Safety Report 15813020 (Version 4)
Quarter: 2019Q1

REPORT INFORMATION
  Report Type: Report from Study
  Country: CA (occurrence: CA)
  Receive Date: 20190111
  Receipt Date: 20190311
  Transmission Date: 20190417
  Serious: Yes (Other)
  Sender: FDA-Public Use
  Company Number: CA-GLAXOSMITHKLINE-CA2018GSK227547

PATIENT
  Sex: Female
  Weight: 84.1 kg

DRUGS (7)
  1. SINGULAIR [Suspect]
     Active Substance: MONTELUKAST SODIUM
     Indication: ASTHMA
     Dosage: UNK
  2. SYMBICORT [Suspect]
     Active Substance: BUDESONIDE\FORMOTEROL FUMARATE DIHYDRATE
     Indication: ASTHMA
     Dosage: UNK
  3. VENTOLIN [Suspect]
     Active Substance: ALBUTEROL SULFATE
     Indication: ASTHMA
     Dosage: 100 ?G, PRN
  4. DIPHENHYDRAMINE. [Concomitant]
     Active Substance: DIPHENHYDRAMINE
     Indication: PRODUCT USED FOR UNKNOWN INDICATION
     Dosage: 25 MG, UNK
     Route: 030
  5. SPIRIVA [Suspect]
     Active Substance: TIOTROPIUM BROMIDE MONOHYDRATE
     Indication: ASTHMA
     Dosage: UNK
  6. MEPOLIZUMAB [Suspect]
     Active Substance: MEPOLIZUMAB
     Indication: ASTHMA
     Dosage: 100 MG, Z (MONTHLY)
     Route: 042
     Dates: start: 20181213
  7. FLOVENT DISKUS [Suspect]
     Active Substance: FLUTICASONE PROPIONATE
     Indication: ASTHMA
     Dosage: UNK

REACTIONS (19)
  - Photopsia [Unknown]
  - Swollen tongue [Recovered/Resolved]
  - Dizziness [Recovered/Resolved]
  - Cough [Unknown]
  - Sinus congestion [Recovering/Resolving]
  - Productive cough [Unknown]
  - Flushing [Recovered/Resolved]
  - Nervousness [Recovered/Resolved]
  - Asthma [Unknown]
  - Sputum increased [Unknown]
  - Chest discomfort [Unknown]
  - Drug effect incomplete [Unknown]
  - Lower respiratory tract infection [Unknown]
  - Vital capacity abnormal [Recovered/Resolved]
  - Dyspnoea [Unknown]
  - Halo vision [Unknown]
  - Dyspnoea exertional [Unknown]
  - Throat tightness [Recovered/Resolved]
  - Asthenia [Recovering/Resolving]
